FAERS Safety Report 17386719 (Version 2)
Quarter: 2021Q1

REPORT INFORMATION
  Report Type: Spontaneous
  Country: US (occurrence: US)
  Receive Date: 20200206
  Receipt Date: 20210121
  Transmission Date: 20210419
  Serious: No
  Sender: FDA-Public Use
  Company Number: US-ELI_LILLY_AND_COMPANY-US202001014556

PATIENT
  Age: 63 Year
  Sex: Female

DRUGS (7)
  1. TYLENOL [Concomitant]
     Active Substance: ACETAMINOPHEN
     Indication: MIGRAINE
     Dosage: UNK, UNKNOWN
     Route: 065
  2. EMGALITY [Suspect]
     Active Substance: GALCANEZUMAB-GNLM
     Indication: MIGRAINE
     Dosage: 120 MG, UNKNOWN
     Route: 058
  3. PROPANOLOL [PROPRANOLOL] [Concomitant]
     Active Substance: PROPRANOLOL HYDROCHLORIDE
     Indication: MIGRAINE
     Dosage: UNK, UNKNOWN
     Route: 065
  4. TOPAMAX [Concomitant]
     Active Substance: TOPIRAMATE
     Indication: MIGRAINE
     Dosage: UNK, UNKNOWN
     Route: 065
  5. BUTALBITAL [Concomitant]
     Active Substance: BUTALBITAL
     Indication: MIGRAINE
     Dosage: UNK, UNKNOWN
     Route: 065
  6. CAFFEINE. [Concomitant]
     Active Substance: CAFFEINE
     Indication: MIGRAINE
     Dosage: UNK, UNKNOWN
     Route: 065
  7. EMGALITY [Suspect]
     Active Substance: GALCANEZUMAB-GNLM
     Dosage: 120 MG, UNKNOWN
     Route: 058

REACTIONS (1)
  - Injection site pain [Unknown]

NARRATIVE: CASE EVENT DATE: 20200130
